FAERS Safety Report 18519679 (Version 6)
Quarter: 2021Q1

REPORT INFORMATION
  Report Type: Spontaneous
  Country: DE (occurrence: DE)
  Receive Date: 20201119
  Receipt Date: 20210311
  Transmission Date: 20210419
  Serious: Yes (Hospitalization, Other)
  Sender: FDA-Public Use
  Company Number: DE-REGENERON PHARMACEUTICALS, INC.-2020-89139

PATIENT

DRUGS (2)
  1. EYLEA [Suspect]
     Active Substance: AFLIBERCEPT
     Indication: NEOVASCULAR AGE-RELATED MACULAR DEGENERATION
     Dosage: RIGHT EYE. DOSE AND FREQUENCY WAS NOT REPORTED. PATIENT RECEIVED A TOTAL OF 3 INJECTIONS
     Route: 031
     Dates: start: 2020, end: 20200731
  2. EYLEA [Suspect]
     Active Substance: AFLIBERCEPT
     Indication: NEOVASCULAR AGE-RELATED MACULAR DEGENERATION
     Dosage: Q4WK, DOSE WAS NOT REPORTED, PATIENT RECEIVED A TOTAL OF 23 INJECTIONS TO RIGHT EYE
     Route: 031
     Dates: start: 20170309, end: 2020

REACTIONS (7)
  - Lacrimation increased [Unknown]
  - Injection site pain [Unknown]
  - Ischaemic cerebral infarction [Recovering/Resolving]
  - Intraocular pressure increased [Recovered/Resolved]
  - Retinal oedema [Not Recovered/Not Resolved]
  - Blindness transient [Recovered/Resolved]
  - Device use issue [Unknown]

NARRATIVE: CASE EVENT DATE: 20201001
